FAERS Safety Report 5622514-9 (Version None)
Quarter: 2008Q1

REPORT INFORMATION
  Report Type: 
  Country: None (occurrence: None)
  Receive Date: 20080114
  Receipt Date: 20070823
  Transmission Date: 20080703
  Serious: Yes (Other)
  Sender: FDA-Public Use
  Company Number: A03200705430

PATIENT
  Age: 72 Year
  Sex: Female

DRUGS (4)
  1. PLAVIX [Suspect]
     Indication: CORONARY ARTERIAL STENT INSERTION
     Dosage: ORAL
     Route: 048
     Dates: start: 20070301
  2. SIMVASTATIN [Concomitant]
  3. LEVOTHYROXINE SODIUM [Concomitant]
  4. ACETYLSALICYLIC ACID SRT [Concomitant]

REACTIONS (9)
  - CONTUSION [None]
  - CORONARY ARTERY OCCLUSION [None]
  - DIARRHOEA [None]
  - DRY THROAT [None]
  - DYSPHONIA [None]
  - HAEMOGLOBIN DECREASED [None]
  - HAEMORRHOIDAL HAEMORRHAGE [None]
  - NAUSEA [None]
  - THYROID FUNCTION TEST ABNORMAL [None]
